FAERS Safety Report 9636328 (Version 1)
Quarter: 2013Q4

REPORT INFORMATION
  Report Type: Spontaneous
  Country: US (occurrence: US)
  Receive Date: 20131021
  Receipt Date: 20131021
  Transmission Date: 20140711
  Serious: No
  Sender: FDA-Public Use
  Company Number: US-009507513-1310USA006053

PATIENT
  Age: 30 Year
  Sex: Female

DRUGS (4)
  1. ISENTRESS [Suspect]
     Indication: BLOOD HIV RNA
     Route: 048
  2. ZDV [Concomitant]
     Indication: ANTIRETROVIRAL THERAPY
     Dosage: UNK, BID
  3. 3TC [Concomitant]
     Indication: ANTIRETROVIRAL THERAPY
     Dosage: UNK, BID
  4. LOPINAVIR (+) RITONAVIR [Concomitant]
     Indication: ANTIRETROVIRAL THERAPY
     Dosage: UNK, BID

REACTIONS (1)
  - Exposure during pregnancy [Recovered/Resolved]
